FAERS Safety Report 7692751-0 (Version None)
Quarter: 2011Q3

REPORT INFORMATION
  Report Type: 
  Country: None (occurrence: None)
  Receive Date: 20110815
  Receipt Date: 20110801
  Transmission Date: 20111222
  Serious: Yes (Hospitalization)
  Sender: FDA-Public Use
  Company Number: DSJ-2011-16218

PATIENT
  Age: 69 Year
  Sex: Female

DRUGS (3)
  1. ATORVASTATIN [Concomitant]
  2. GLUCOSAMINE/CHONDROITIN [Concomitant]
  3. BENICAR [Suspect]
     Indication: HYPERTENSION
     Dosage: 20 MG (20 MG, 1 IN 1 D), PER ORAL
     Route: 048
     Dates: start: 20071201

REACTIONS (1)
  - ENDOMETRIOSIS [None]
